FAERS Safety Report 17268698 (Version 1)
Quarter: 2020Q1

REPORT INFORMATION
  Report Type: Spontaneous
  Country: US (occurrence: US)
  Receive Date: 20200114
  Receipt Date: 20200114
  Transmission Date: 20200409
  Serious: No
  Sender: FDA-Public Use
  Company Number: US-009507513-2001USA003524

PATIENT
  Age: 67 Year
  Sex: Female

DRUGS (2)
  1. BELSOMRA [Suspect]
     Active Substance: SUVOREXANT
     Indication: INSOMNIA
     Dosage: 20 MILLIGRAM, ONCE DAILY IN THE EVENING
     Route: 048
     Dates: start: 2015, end: 201910
  2. AMBIEN [Suspect]
     Active Substance: ZOLPIDEM TARTRATE
     Dosage: UNK
     Dates: start: 201910

REACTIONS (5)
  - Insomnia [Unknown]
  - Feeling abnormal [Unknown]
  - Thyroid disorder [Not Recovered/Not Resolved]
  - Lethargy [Unknown]
  - Degenerative bone disease [Not Recovered/Not Resolved]

NARRATIVE: CASE EVENT DATE: 2019
